FAERS Safety Report 13812515 (Version 1)
Quarter: 2017Q3

REPORT INFORMATION
  Report Type: Report from Study
  Country: US (occurrence: US)
  Receive Date: 20170728
  Receipt Date: 20170728
  Transmission Date: 20171127
  Serious: No
  Sender: FDA-Public Use
  Company Number: US-AMGEN-USASL2017092622

PATIENT
  Age: 69 Year
  Sex: Female

DRUGS (1)
  1. REPATHA [Suspect]
     Active Substance: EVOLOCUMAB
     Indication: LOW DENSITY LIPOPROTEIN INCREASED
     Dosage: 140 MG/ML, Q2WK
     Route: 058
     Dates: start: 20170613

REACTIONS (11)
  - Pyrexia [Unknown]
  - Eye pruritus [Unknown]
  - Injection site bruising [Unknown]
  - Sleep disorder [Unknown]
  - Back pain [Unknown]
  - Pain in extremity [Unknown]
  - Injection site discolouration [Unknown]
  - Lethargy [Unknown]
  - Productive cough [Unknown]
  - Injection site erythema [Unknown]
  - Oropharyngeal pain [Unknown]

NARRATIVE: CASE EVENT DATE: 2017
